FAERS Safety Report 6538572-3 (Version None)
Quarter: 2010Q1

REPORT INFORMATION
  Report Type: 
  Country: None (occurrence: None)
  Receive Date: 20100113
  Receipt Date: 20100113
  Transmission Date: 20100710
  Serious: Yes (Other)
  Sender: FDA-Public Use
  Company Number: None

PATIENT
  Age: 39 Year
  Sex: Female
  Weight: 70.3075 kg

DRUGS (2)
  1. CYMBALTA [Suspect]
     Indication: ANXIETY
     Dosage: 20-60 1 PER DAY PO
     Route: 048
     Dates: start: 20061020, end: 20091020
  2. CYMBALTA [Suspect]
     Indication: DEPRESSION
     Dosage: 20-60 1 PER DAY PO
     Route: 048
     Dates: start: 20061020, end: 20091020

REACTIONS (16)
  - ACTIVITIES OF DAILY LIVING IMPAIRED [None]
  - ANGER [None]
  - CRYING [None]
  - DISTURBANCE IN ATTENTION [None]
  - DIZZINESS [None]
  - DRUG INEFFECTIVE [None]
  - DRUG WITHDRAWAL SYNDROME [None]
  - EMOTIONAL DISORDER [None]
  - GASTRIC DISORDER [None]
  - INSOMNIA [None]
  - IRRITABILITY [None]
  - MENTAL DISORDER [None]
  - PARAESTHESIA [None]
  - PARTNER STRESS [None]
  - SOCIAL PROBLEM [None]
  - SPEECH DISORDER [None]
